FAERS Safety Report 12655122 (Version 5)
Quarter: 2017Q1

REPORT INFORMATION
  Report Type: Report from Study
  Country: IT (occurrence: IT)
  Receive Date: 20160816
  Receipt Date: 20170310
  Transmission Date: 20170428
  Serious: Yes (Death)
  Sender: FDA-Public Use
  Company Number: IT-ASTELLAS-2016US031279

PATIENT
  Age: 68 Year
  Sex: Male

DRUGS (2)
  1. ENZALUTAMIDE [Suspect]
     Active Substance: ENZALUTAMIDE
     Indication: HORMONE-REFRACTORY PROSTATE CANCER
     Route: 065
     Dates: start: 20160401, end: 20160429
  2. LANTUS [Concomitant]
     Active Substance: INSULIN GLARGINE
     Indication: TYPE 2 DIABETES MELLITUS
     Dosage: UNK UNK, UNKNOWN FREQ.
     Route: 058
     Dates: start: 1999

REACTIONS (2)
  - Cardio-respiratory arrest [Fatal]
  - Bone pain [Unknown]

NARRATIVE: CASE EVENT DATE: 20160429
